FAERS Safety Report 18798425 (Version 1)
Quarter: 2021Q1

REPORT INFORMATION
  Report Type: Spontaneous
  Country: US (occurrence: US)
  Receive Date: 20210128
  Receipt Date: 20210128
  Transmission Date: 20210419
  Serious: No
  Sender: FDA-Public Use
  Company Number: US-PFIZER INC-2021057085

PATIENT
  Age: 65 Year
  Sex: Male
  Weight: 111.11 kg

DRUGS (1)
  1. INLYTA [Suspect]
     Active Substance: AXITINIB
     Indication: RENAL CANCER
     Dosage: 5 MG, 2X/DAY, (12 HOURS APART)
     Route: 048
     Dates: start: 202009

REACTIONS (2)
  - Neoplasm progression [Unknown]
  - Rash [Unknown]
